FAERS Safety Report 10157905 (Version 1)
Quarter: 2014Q2

REPORT INFORMATION
  Report Type: Spontaneous
  Country: AU (occurrence: AU)
  Receive Date: 20140507
  Receipt Date: 20140507
  Transmission Date: 20141212
  Serious: Yes (Death, Hospitalization)
  Sender: FDA-Public Use
  Company Number: AU-ELI_LILLY_AND_COMPANY-AU201405000001

PATIENT
  Sex: Female
  Weight: 120 kg

DRUGS (1)
  1. GEMZAR [Suspect]
     Dosage: 2000 MG, SINGLE
     Route: 042
     Dates: start: 20131204

REACTIONS (8)
  - Respiratory failure [Fatal]
  - Malignant neoplasm progression [Fatal]
  - Delirium [Fatal]
  - Obesity [Fatal]
  - Sleep apnoea syndrome [Fatal]
  - Myotonic dystrophy [Fatal]
  - Acute hepatic failure [Unknown]
  - Depressed level of consciousness [Unknown]
